FAERS Safety Report 4675808-8 (Version None)
Quarter: 2005Q2

REPORT INFORMATION
  Report Type: 
  Country: None (occurrence: None)
  Receive Date: 20050527
  Receipt Date: 20050513
  Transmission Date: 20051028
  Serious: Yes (Life-Threatening)
  Sender: FDA-Public Use
  Company Number: HQWYE874423MAY05

PATIENT
  Age: 44 Year
  Sex: Male

DRUGS (1)
  1. ENBREL [Suspect]
     Indication: ANKYLOSING SPONDYLITIS
     Dosage: 2 X 25 MG
     Route: 058
     Dates: start: 20041001

REACTIONS (3)
  - ANGIONEUROTIC OEDEMA [None]
  - ARTHROPOD STING [None]
  - DYSPHONIA [None]
